FAERS Safety Report 4475799-9 (Version None)
Quarter: 2004Q4

REPORT INFORMATION
  Report Type: 
  Country: None (occurrence: None)
  Receive Date: 20041015
  Receipt Date: 20041008
  Transmission Date: 20050328
  Serious: Yes (Other)
  Sender: FDA-Public Use
  Company Number: GB-GLAXOSMITHKLINE-B0347665A

PATIENT
  Age: 82 Year
  Sex: Male

DRUGS (1)
  1. DUTASTERIDE [Suspect]
     Dosage: 500MG PER DAY
     Route: 048
     Dates: start: 20040707, end: 20040923

REACTIONS (1)
  - VASCULITIC RASH [None]
